FAERS Safety Report 5493215-5 (Version None)
Quarter: 2007Q4

REPORT INFORMATION
  Report Type: 
  Country: None (occurrence: None)
  Receive Date: 20071023
  Receipt Date: 20071019
  Transmission Date: 20080405
  Serious: Yes (Hospitalization)
  Sender: FDA-Public Use
  Company Number: B0489921A

PATIENT
  Age: 87 Year
  Sex: Female

DRUGS (6)
  1. DEROXAT [Suspect]
     Indication: DRUG USE FOR UNKNOWN INDICATION
  2. CEFACIDAL [Suspect]
     Indication: THERAPEUTIC PROCEDURE
     Dosage: 1G THREE TIMES PER DAY
     Dates: start: 20070907, end: 20070910
  3. DOLIPRANE [Suspect]
     Indication: THERAPEUTIC PROCEDURE
     Dosage: 1G FOUR TIMES PER DAY
     Dates: start: 20070909
  4. INIPOMP [Suspect]
  5. LIPANTHYL [Suspect]
  6. LOVENOX [Concomitant]
     Indication: THERAPEUTIC PROCEDURE

REACTIONS (1)
  - PANCYTOPENIA [None]
